FAERS Safety Report 17909947 (Version 1)
Quarter: 2020Q2

REPORT INFORMATION
  Report Type: Spontaneous
  Country: GB (occurrence: GB)
  Receive Date: 20200618
  Receipt Date: 20200618
  Transmission Date: 20200714
  Serious: Yes (Other)
  Sender: FDA-Public Use
  Company Number: GB-TEVA-2020-GB-1788889

PATIENT
  Sex: Female

DRUGS (5)
  1. RANITIDINE. [Suspect]
     Active Substance: RANITIDINE
     Route: 065
  2. NORDITROPIN [Concomitant]
     Active Substance: SOMATROPIN
  3. LEVOTHYROXINE. [Suspect]
     Active Substance: LEVOTHYROXINE
     Route: 065
  4. TOBRAMAX [Concomitant]
     Indication: ESSENTIAL TREMOR
  5. LIOTHYRONINE [Suspect]
     Active Substance: LIOTHYRONINE
     Route: 065

REACTIONS (1)
  - Pulmonary hypertension [Unknown]
